FAERS Safety Report 7093292-4 (Version None)
Quarter: 2010Q4

REPORT INFORMATION
  Report Type: 
  Country: None (occurrence: None)
  Receive Date: 20101110
  Receipt Date: 20101102
  Transmission Date: 20110411
  Serious: Yes (Other)
  Sender: FDA-Public Use
  Company Number: CH-PFIZER INC-2010139662

PATIENT
  Age: 78 Year
  Sex: Female

DRUGS (2)
  1. LYRICA [Suspect]
     Dosage: UNK
  2. OXYCONTIN [Concomitant]
     Dosage: UNK

REACTIONS (3)
  - FALL [None]
  - FEMORAL NECK FRACTURE [None]
  - HYPOTENSION [None]
